FAERS Safety Report 25877166 (Version 1)
Quarter: 2025Q4

REPORT INFORMATION
  Report Type: Spontaneous
  Country: US (occurrence: None)
  Receive Date: 20251002
  Receipt Date: 20251002
  Transmission Date: 20260117
  Serious: Yes (Other)
  Sender: FDA-CTU
  Company Number: None

PATIENT
  Age: 77 Year
  Sex: Male

DRUGS (1)
  1. LENALIDOMIDE [Suspect]
     Active Substance: LENALIDOMIDE
     Indication: Plasma cell myeloma
     Dosage: 15MG DAILY X ORAL
     Route: 048
     Dates: start: 20250708

REACTIONS (3)
  - Pain in extremity [None]
  - Erythema [None]
  - Deep vein thrombosis [None]

NARRATIVE: CASE EVENT DATE: 20250925
